FAERS Safety Report 5994009-4 (Version None)
Quarter: 2008Q4

REPORT INFORMATION
  Report Type: 
  Country: None (occurrence: None)
  Receive Date: 20081212
  Receipt Date: 20080606
  Transmission Date: 20090506
  Serious: No
  Sender: FDA-Public Use
  Company Number: US-AMGEN-KDL282884

PATIENT
  Sex: Female
  Weight: 92.2 kg

DRUGS (10)
  1. ENBREL [Suspect]
     Indication: PSORIATIC ARTHROPATHY
     Route: 058
     Dates: start: 20080429
  2. ALLOPURINOL [Concomitant]
     Dates: start: 20080428
  3. NORVASC [Concomitant]
     Dates: start: 20060101
  4. HYDROCHLOROTHIAZIDE [Concomitant]
     Dates: start: 20060101
  5. TORSEMIDE [Concomitant]
     Dates: start: 20060101
  6. COREG [Concomitant]
     Dates: start: 20070101
  7. JANUVIA [Concomitant]
     Dates: start: 20070101
  8. PRANDIN [Concomitant]
     Dates: start: 20060101
  9. LANTUS [Concomitant]
     Dates: start: 20060101
  10. DOVONEX [Concomitant]
     Route: 061
     Dates: start: 20070101

REACTIONS (4)
  - COUGH [None]
  - HYPERSENSITIVITY [None]
  - NASOPHARYNGITIS [None]
  - UPPER RESPIRATORY TRACT INFECTION [None]
